FAERS Safety Report 5463127-1 (Version None)
Quarter: 2007Q3

REPORT INFORMATION
  Report Type: 
  Country: None (occurrence: None)
  Receive Date: 20070918
  Receipt Date: 20070918
  Transmission Date: 20080115
  Serious: Yes (Other)
  Sender: FDA-Public Use
  Company Number: None

PATIENT
  Age: 52 Year
  Sex: Female
  Weight: 127.0072 kg

DRUGS (2)
  1. BUDEPION XL   300 MG  TEVA [Suspect]
     Indication: ANXIETY
     Dosage: 1 TABLET DAILY PO
     Route: 048
     Dates: start: 20070909, end: 20070918
  2. BUDEPION XL   300 MG  TEVA [Suspect]
     Indication: DEPRESSION
     Dosage: 1 TABLET DAILY PO
     Route: 048
     Dates: start: 20070909, end: 20070918

REACTIONS (4)
  - ANXIETY [None]
  - CONDITION AGGRAVATED [None]
  - PHARMACEUTICAL PRODUCT COMPLAINT [None]
  - SUICIDAL IDEATION [None]
